FAERS Safety Report 12095521 (Version 5)
Quarter: 2025Q1

REPORT INFORMATION
  Report Type: Report from Study
  Country: US (occurrence: US)
  Receive Date: 20160219
  Receipt Date: 20250213
  Transmission Date: 20250409
  Serious: Yes (Hospitalization, Other)
  Sender: BIOGEN
  Company Number: US-BIOGENIDEC-2013BI100265

PATIENT
  Sex: Female

DRUGS (10)
  1. TYSABRI [Suspect]
     Active Substance: NATALIZUMAB
     Indication: Multiple sclerosis
     Route: 050
     Dates: start: 20080624, end: 20130702
  2. TYSABRI [Suspect]
     Active Substance: NATALIZUMAB
     Route: 050
     Dates: end: 201311
  3. TYSABRI [Suspect]
     Active Substance: NATALIZUMAB
     Route: 050
     Dates: start: 201311, end: 201512
  4. TYSABRI [Suspect]
     Active Substance: NATALIZUMAB
     Route: 050
     Dates: start: 20080624, end: 20140102
  5. TYSABRI [Suspect]
     Active Substance: NATALIZUMAB
     Route: 050
     Dates: start: 20160322
  6. TECFIDERA [Suspect]
     Active Substance: DIMETHYL FUMARATE
     Indication: Multiple sclerosis
     Route: 050
     Dates: start: 20140606
  7. ARIXTRA [Concomitant]
     Active Substance: FONDAPARINUX SODIUM
     Indication: Product used for unknown indication
     Route: 050
  8. ONDANSETRON [Concomitant]
     Active Substance: ONDANSETRON
     Indication: Product used for unknown indication
     Route: 050
  9. MORPHINE [Concomitant]
     Active Substance: MORPHINE
     Indication: Product used for unknown indication
     Route: 050
  10. PANTOPRAZOLE [Concomitant]
     Active Substance: PANTOPRAZOLE
     Indication: Product used for unknown indication
     Route: 050

REACTIONS (18)
  - Pneumonia [Unknown]
  - Generalised tonic-clonic seizure [Recovered/Resolved]
  - Brain abscess [Recovered/Resolved]
  - Intracranial mass [Unknown]
  - Seizure [Recovered/Resolved]
  - Abscess [Recovered/Resolved]
  - Gastrointestinal disorder [Recovered/Resolved]
  - Hemiplegia [Unknown]
  - Hemiparesis [Not Recovered/Not Resolved]
  - Incontinence [Unknown]
  - Memory impairment [Not Recovered/Not Resolved]
  - Photosensitivity reaction [Recovered/Resolved]
  - Central nervous system lesion [Recovered/Resolved]
  - Intra-abdominal haematoma [Unknown]
  - Rash [Recovered/Resolved]
  - Fatigue [Unknown]
  - Headache [Unknown]
  - Nausea [Unknown]

NARRATIVE: CASE EVENT DATE: 20130101
